FAERS Safety Report 8938794 (Version 2)
Quarter: 2012Q4

REPORT INFORMATION
  Report Type: 
  Country: US (occurrence: US)
  Receive Date: 20121121
  Receipt Date: 20121212
  Transmission Date: 20130627
  Serious: Yes (Hospitalization)
  Sender: FDA-Public Use
  Company Number: US-ASTELLAS-CID000000002111883

PATIENT
  Sex: Female

DRUGS (1)
  1. TARCEVA [Suspect]
     Indication: MALIGNANT RESPIRATORY TRACT NEOPLASM
     Dosage: decreased dose
     Route: 065

REACTIONS (8)
  - Vertigo [Unknown]
  - Staphylococcal infection [Unknown]
  - Dizziness [Unknown]
  - Rash [Unknown]
  - Diarrhoea [Unknown]
  - Ocular hyperaemia [Unknown]
  - Eye irritation [Unknown]
  - Oral disorder [Unknown]
